FAERS Safety Report 7943981 (Version 6)
Quarter: 2013Q3

REPORT INFORMATION
  Report Type: Spontaneous
  Country: US (occurrence: US)
  Receive Date: 20110513
  Receipt Date: 20130820
  Transmission Date: 20140515
  Serious: Yes (Hospitalization, Other)
  Sender: FDA-Public Use
  Company Number: US-SANOFI-AVENTIS-2011SA029031

PATIENT
  Age: 70 Year
  Sex: Male

DRUGS (9)
  1. LASIX [Suspect]
     Route: 065
  2. BLINDED THERAPY [Suspect]
     Indication: TYPE 2 DIABETES MELLITUS
     Route: 065
  3. BLINDED THERAPY [Suspect]
     Indication: TYPE 2 DIABETES MELLITUS
     Route: 065
     Dates: start: 201012
  4. LISINOPRIL [Suspect]
  5. CARVEDILOL [Suspect]
     Route: 065
  6. INSULIN DETEMIR [Suspect]
     Indication: TYPE 2 DIABETES MELLITUS
  7. INSULIN ASPART [Suspect]
     Indication: TYPE 2 DIABETES MELLITUS
  8. RENIN-ANGIOTENSIN SYSTEM, AGENTS ACTING ON [Concomitant]
     Dates: start: 20101201
  9. ASPIRIN [Concomitant]
     Dates: start: 20101201

REACTIONS (2)
  - Systemic inflammatory response syndrome [Recovered/Resolved]
  - Cellulitis [Recovered/Resolved]
